FAERS Safety Report 16872839 (Version 1)
Quarter: 2019Q4

REPORT INFORMATION
  Report Type: Spontaneous
  Country: SE (occurrence: SE)
  Receive Date: 20191001
  Receipt Date: 20191001
  Transmission Date: 20200122
  Serious: Yes (Hospitalization)
  Sender: FDA-Public Use
  Company Number: SE-PFIZER INC-2019141697

PATIENT
  Age: 66 Year
  Sex: Male

DRUGS (6)
  1. CARDIZEM RETARD [Suspect]
     Active Substance: DILTIAZEM HYDROCHLORIDE
     Indication: ANGINA PECTORIS
     Dosage: 90 MG, 1X/DAY
     Dates: start: 1985, end: 20190304
  2. SIMVASTATIN BLUEFISH [Concomitant]
     Active Substance: SIMVASTATIN
     Dosage: 40 MG, 1X/DAY
     Dates: start: 1990, end: 20190305
  3. CARDIZEM RETARD [Suspect]
     Active Substance: DILTIAZEM HYDROCHLORIDE
     Indication: HYPERTENSION
  4. TROMBYL [Concomitant]
     Active Substance: ASPIRIN
     Dosage: 75 MG, DAILY
     Dates: start: 1985
  5. GLYTRIN [GLYCERYL TRINITRATE] [Concomitant]
     Dosage: 1-2 DF, AS NEEDED
  6. BISOPROLOL ACTAVIS [Concomitant]
     Active Substance: BISOPROLOL
     Dosage: 2.5 MG, DAILY
     Dates: start: 1985

REACTIONS (4)
  - Osteoarthritis [Recovering/Resolving]
  - Cardiac failure [Unknown]
  - Aortic stenosis [Unknown]
  - Arthralgia [Recovered/Resolved]
